FAERS Safety Report 24655851 (Version 3)
Quarter: 2024Q4

REPORT INFORMATION
  Report Type: Spontaneous
  Country: CN (occurrence: CN)
  Receive Date: 20241124
  Receipt Date: 20241204
  Transmission Date: 20250115
  Serious: Yes (Hospitalization)
  Sender: BOEHRINGER INGELHEIM
  Company Number: CN-BoehringerIngelheim-2024-BI-062541

PATIENT
  Age: 62 Year
  Sex: Male

DRUGS (11)
  1. LINAGLIPTIN [Suspect]
     Active Substance: LINAGLIPTIN
     Indication: Diabetes mellitus inadequate control
     Route: 048
  2. ERTUGLIFLOZIN [Concomitant]
     Active Substance: ERTUGLIFLOZIN
     Indication: Diabetes mellitus inadequate control
     Route: 048
  3. METFORMIN [Concomitant]
     Active Substance: METFORMIN HYDROCHLORIDE
     Indication: Diabetes mellitus
     Route: 048
  4. ASPIRIN [Concomitant]
     Active Substance: ASPIRIN
     Indication: Antiplatelet therapy
     Route: 048
  5. CLOPIDOGREL [Concomitant]
     Active Substance: CLOPIDOGREL BISULFATE
     Indication: Antiplatelet therapy
     Route: 048
  6. ATORVASTATIN CALCIUM [Concomitant]
     Active Substance: ATORVASTATIN CALCIUM
     Indication: Lipids increased
     Route: 048
  7. FAMOTIDINE [Concomitant]
     Active Substance: FAMOTIDINE
     Indication: Prophylaxis
     Route: 048
  8. Butylphthalide and Sodium Chloride Injection [Concomitant]
     Indication: Drug therapy
     Route: 042
  9. Edaravone and Dexborneol Concentrated Solution for Injection [Concomitant]
     Indication: Drug therapy
     Dosage: 15 ML + 0.9%SODIUM CHLORIDE INJECTION 100ML
     Route: 042
  10. NIFEDIPINE [Concomitant]
     Active Substance: NIFEDIPINE
     Indication: Blood pressure increased
     Route: 048
  11. ACARBOSE [Concomitant]
     Active Substance: ACARBOSE
     Indication: Blood glucose increased
     Route: 048

REACTIONS (4)
  - Cerebellar infarction [Recovering/Resolving]
  - Erythema multiforme [Recovered/Resolved]
  - Vertebral artery stenosis [Recovering/Resolving]
  - Cerebrovascular stenosis [Recovering/Resolving]
